FAERS Safety Report 5290818-8 (Version None)
Quarter: 2007Q2

REPORT INFORMATION
  Report Type: 
  Country: None (occurrence: None)
  Receive Date: 20070409
  Receipt Date: 20070330
  Transmission Date: 20071010
  Serious: Yes (Other)
  Sender: FDA-Public Use
  Company Number: JP-MERCK-0703USA05193

PATIENT
  Age: 74 Year
  Sex: Female
  Weight: 59 kg

DRUGS (3)
  1. DECADRON PHOSPHATE [Suspect]
     Indication: PREMEDICATION
     Route: 041
     Dates: start: 20061207, end: 20070315
  2. PACLITAXEL [Concomitant]
     Indication: BREAST CANCER
     Route: 041
     Dates: start: 20061207, end: 20070308
  3. RESTAMIN [Concomitant]
     Indication: PREMEDICATION
     Route: 048
     Dates: start: 20061207, end: 20070315

REACTIONS (1)
  - ANAPHYLACTIC SHOCK [None]
